FAERS Safety Report 8443469-8 (Version None)
Quarter: 2012Q2

REPORT INFORMATION
  Report Type: 
  Country: None (occurrence: None)
  Receive Date: 20120618
  Receipt Date: 20120608
  Transmission Date: 20120825
  Serious: Yes (Other)
  Sender: FDA-Public Use
  Company Number: US-JNJFOC-20120411363

PATIENT
  Sex: Male
  Weight: 74.84 kg

DRUGS (7)
  1. DURAGESIC-100 [Suspect]
     Indication: FACET JOINT SYNDROME
     Route: 062
     Dates: start: 20030101
  2. DURAGESIC-100 [Suspect]
     Route: 062
  3. DURAGESIC-100 [Suspect]
     Route: 062
  4. PROTONIX [Concomitant]
     Indication: GASTROOESOPHAGEAL REFLUX DISEASE
     Route: 048
     Dates: start: 20030101
  5. DURAGESIC-100 [Suspect]
     Indication: BACK PAIN
     Route: 062
     Dates: start: 20030101
  6. DURAGESIC-100 [Suspect]
     Indication: EXOSTOSIS
     Route: 062
     Dates: start: 20030101
  7. DURAGESIC-100 [Suspect]
     Route: 062

REACTIONS (11)
  - FATIGUE [None]
  - EMOTIONAL DISORDER [None]
  - CONTUSION [None]
  - BACK PAIN [None]
  - HYPERHIDROSIS [None]
  - ANXIETY [None]
  - PRODUCT QUALITY ISSUE [None]
  - BREAKTHROUGH PAIN [None]
  - INADEQUATE ANALGESIA [None]
  - ROAD TRAFFIC ACCIDENT [None]
  - INSOMNIA [None]
